FAERS Safety Report 18570213 (Version 1)
Quarter: 2020Q4

REPORT INFORMATION
  Report Type: Spontaneous
  Country: IN (occurrence: IT)
  Receive Date: 20201202
  Receipt Date: 20201202
  Transmission Date: 20210114
  Serious: Yes (Hospitalization, Other)
  Sender: FDA-Public Use
  Company Number: IT-ELI_LILLY_AND_COMPANY-IT202011010172

PATIENT
  Age: 54 Year
  Sex: Male

DRUGS (3)
  1. GEMCITABINE HYDROCHLORIDE. [Suspect]
     Active Substance: GEMCITABINE HYDROCHLORIDE
     Dosage: 1 DAYS Q21 FOR 3 CYCLES
     Route: 065
  2. CISPLATIN. [Suspect]
     Active Substance: CISPLATIN
     Indication: BLADDER CANCER
     Dosage: 1,8 Q21 FOR FOUR CYCLES
     Route: 065
  3. GEMCITABINE HYDROCHLORIDE. [Suspect]
     Active Substance: GEMCITABINE HYDROCHLORIDE
     Indication: BLADDER CANCER
     Dosage: DAYS 1 AND 8 Q21.
     Route: 065

REACTIONS (9)
  - Hypoalbuminaemia [Recovered/Resolved]
  - Sepsis [Recovered/Resolved]
  - Neutropenia [Recovered/Resolved]
  - Leukopenia [Recovered/Resolved]
  - Hypotension [Recovered/Resolved]
  - Capillary leak syndrome [Recovered/Resolved]
  - Polyuria [Recovered/Resolved]
  - Thrombocytopenia [Recovered/Resolved]
  - Anaemia [Recovered/Resolved]
